FAERS Safety Report 16382844 (Version 1)
Quarter: 2019Q2

REPORT INFORMATION
  Report Type: Spontaneous
  Country: US (occurrence: US)
  Receive Date: 20190603
  Receipt Date: 20190603
  Transmission Date: 20190711
  Serious: Yes (Other)
  Sender: FDA-Public Use
  Company Number: US-RECKITT BENCKISER HEALTHCARE INT LIMITED-RB-86093-2019

PATIENT
  Age: 23 Year
  Sex: Male

DRUGS (1)
  1. DELSYM [Suspect]
     Active Substance: DEXTROMETHORPHAN
     Indication: DRUG ABUSE
     Dosage: UNK
     Route: 048

REACTIONS (4)
  - Drug abuse [Unknown]
  - Overdose [Unknown]
  - Incorrect product administration duration [Unknown]
  - Therapeutic response unexpected [Unknown]
